FAERS Safety Report 5501217-5 (Version None)
Quarter: 2007Q4

REPORT INFORMATION
  Report Type: 
  Country: None (occurrence: None)
  Receive Date: 20071029
  Receipt Date: 20071017
  Transmission Date: 20080405
  Serious: Yes (Hospitalization, Other)
  Sender: FDA-Public Use
  Company Number: US-PFIZER INC-2007087764

PATIENT
  Sex: Female
  Weight: 77 kg

DRUGS (5)
  1. CADUET [Suspect]
     Indication: HYPERTENSION
     Route: 048
  2. CADUET [Suspect]
     Indication: BLOOD CHOLESTEROL INCREASED
  3. CELEBREX [Suspect]
     Indication: ARTHRALGIA
     Dates: start: 20070101, end: 20070101
  4. PREDNISONE [Suspect]
     Indication: ERYTHEMA INFECTIOSUM
     Dosage: TEXT:10 TO 40MG DAILY
     Dates: start: 20070101, end: 20070101
  5. ANTIHYPERTENSIVES [Concomitant]

REACTIONS (9)
  - ARTHRALGIA [None]
  - ASTHENIA [None]
  - BEDRIDDEN [None]
  - DRUG INEFFECTIVE [None]
  - ERYTHEMA INFECTIOSUM [None]
  - FATIGUE [None]
  - HERNIA REPAIR [None]
  - MUSCLE SPASMS [None]
  - MYALGIA [None]
